FAERS Safety Report 6234723-9 (Version None)
Quarter: 2009Q2

REPORT INFORMATION
  Report Type: 
  Country: None (occurrence: None)
  Receive Date: 20090616
  Receipt Date: 20090616
  Transmission Date: 20091009
  Serious: Yes (Hospitalization)
  Sender: FDA-Public Use
  Company Number: None

PATIENT
  Age: 76 Year
  Sex: Female
  Weight: 80.9 kg

DRUGS (6)
  1. ALLOPURINOL [Suspect]
     Indication: GOUT
     Dosage: 300 MG ONCE DAILY PO
     Route: 048
     Dates: start: 20090507, end: 20090611
  2. ASPIRIN [Concomitant]
  3. NAPROXEN [Concomitant]
  4. LEVOTHYROXINE SODIUM [Concomitant]
  5. LISINOPRIL AND HYDROCHLOROTHIAZIDE [Concomitant]
  6. CALCIUM CITRATE/VITAMIN D [Concomitant]

REACTIONS (3)
  - HELICOBACTER INFECTION [None]
  - LEUKOCYTOCLASTIC VASCULITIS [None]
  - RENAL FAILURE ACUTE [None]
